FAERS Safety Report 9972550 (Version 1)
Quarter: 2014Q1

REPORT INFORMATION
  Report Type: Report from Study
  Country: US (occurrence: US)
  Receive Date: 20140306
  Receipt Date: 20140306
  Transmission Date: 20141002
  Serious: No
  Sender: FDA-Public Use
  Company Number: US-ABBVIE-13P-163-1154143-00

PATIENT
  Age: 51 Year
  Sex: Male

DRUGS (4)
  1. HUMIRA [Suspect]
     Indication: PSORIASIS
     Dates: start: 20131001
  2. BENICAR [Concomitant]
     Indication: PRODUCT USED FOR UNKNOWN INDICATION
     Dosage: 40 MG DAILY
  3. VIMPAT [Concomitant]
     Indication: PRODUCT USED FOR UNKNOWN INDICATION
  4. ZONISAMIDE [Concomitant]
     Indication: PRODUCT USED FOR UNKNOWN INDICATION
     Dosage: 1 TAB IN AM AND 2 TABS IN PM

REACTIONS (1)
  - Medication error [Not Recovered/Not Resolved]
